FAERS Safety Report 16487760 (Version 1)
Quarter: 2019Q3

REPORT INFORMATION
  Report Type: Spontaneous
  Country: US (occurrence: US)
  Receive Date: 20190626
  Receipt Date: 20190626
  Transmission Date: 20191004
  Serious: Yes (Other)
  Sender: FDA-Public Use
  Company Number: None

PATIENT
  Age: 74 Year
  Sex: Male

DRUGS (5)
  1. VITAMIN D3 [Concomitant]
     Active Substance: CHOLECALCIFEROL
  2. GLATIRAMER [Suspect]
     Active Substance: GLATIRAMER
     Indication: MULTIPLE SCLEROSIS
     Dosage: ?          OTHER FREQUENCY:TIW;?
     Route: 058
  3. MUCINEX [Concomitant]
     Active Substance: GUAIFENESIN
  4. CRANBERRY TABLETS [Concomitant]
  5. CALCIUM CITRATE [Concomitant]
     Active Substance: CALCIUM CITRATE

REACTIONS (1)
  - Polyp [None]

NARRATIVE: CASE EVENT DATE: 20190626
